FAERS Safety Report 13343508 (Version 1)
Quarter: 2017Q1

REPORT INFORMATION
  Report Type: Spontaneous
  Country: BR (occurrence: BR)
  Receive Date: 20170316
  Receipt Date: 20170316
  Transmission Date: 20170428
  Serious: Yes (Other)
  Sender: FDA-Public Use
  Company Number: BR-PFIZER INC-2015303516

PATIENT
  Age: 61 Year
  Sex: Male
  Weight: 70 kg

DRUGS (3)
  1. LOSARTAN. [Concomitant]
     Active Substance: LOSARTAN
     Indication: BLOOD PRESSURE MEASUREMENT
     Dosage: UNK
     Dates: start: 201403
  2. CAVERJECT [Suspect]
     Active Substance: ALPROSTADIL
     Dosage: 10 ?G, UNK
  3. CAVERJECT [Suspect]
     Active Substance: ALPROSTADIL
     Dosage: 20 ?G, UNK

REACTIONS (3)
  - Aortic valve incompetence [Not Recovered/Not Resolved]
  - Drug ineffective [Unknown]
  - Intentional product misuse [Not Recovered/Not Resolved]
